FAERS Safety Report 10229162 (Version 1)
Quarter: 2014Q2

REPORT INFORMATION
  Report Type: Spontaneous
  Country: JP (occurrence: JP)
  Receive Date: 20140611
  Receipt Date: 20140611
  Transmission Date: 20141212
  Serious: Yes (Hospitalization)
  Sender: FDA-Public Use
  Company Number: JP-009507513-1406JPN003964

PATIENT
  Age: 68 Year
  Sex: Female

DRUGS (2)
  1. ZETIA TABLETS 10MG [Suspect]
     Route: 048
  2. TRICOR (FENOFIBRATE) [Suspect]
     Route: 048

REACTIONS (3)
  - Adverse event [Unknown]
  - Blood creatine phosphokinase increased [Unknown]
  - Chest pain [Unknown]
